FAERS Safety Report 14020022 (Version 1)
Quarter: 2017Q3

REPORT INFORMATION
  Report Type: Spontaneous
  Country: US (occurrence: US)
  Receive Date: 20170928
  Receipt Date: 20170928
  Transmission Date: 20171128
  Serious: No
  Sender: FDA-Public Use
  Company Number: US-ALLERGAN-1734708US

PATIENT
  Sex: Female

DRUGS (2)
  1. ZENPEP [Suspect]
     Active Substance: PANCRELIPASE AMYLASE\PANCRELIPASE LIPASE\PANCRELIPASE PROTEASE
     Indication: CYSTIC FIBROSIS
     Dosage: 6 CAPSULES WITH EACH MEAL AND 3-4 CAPSULES WITH EACH SNACK, TOTAL OF 26-27 CAPSULES
     Route: 048
  2. ZENPEP [Suspect]
     Active Substance: PANCRELIPASE AMYLASE\PANCRELIPASE LIPASE\PANCRELIPASE PROTEASE
     Dosage: 6 CAPSULES WI EACH MEAL AND 3-4 CPUES WITH EACH SNACK, TOTAL OF 26-27 CAPSULES
     Route: 048

REACTIONS (2)
  - Abdominal pain [Recovered/Resolved]
  - Dyspepsia [Recovered/Resolved]
